FAERS Safety Report 6323650-4 (Version None)
Quarter: 2009Q3

REPORT INFORMATION
  Report Type: 
  Country: None (occurrence: None)
  Receive Date: 20090824
  Receipt Date: 20090615
  Transmission Date: 20100115
  Serious: No
  Sender: FDA-Public Use
  Company Number: US-ABBOTT-09P-163-0578852-00

PATIENT
  Sex: Female
  Weight: 59.02 kg

DRUGS (4)
  1. NIASPAN [Suspect]
     Indication: BLOOD TRIGLYCERIDES INCREASED
     Route: 048
     Dates: start: 20090301, end: 20090401
  2. NIASPAN [Suspect]
     Dates: end: 20090601
  3. ASPIRIN [Suspect]
     Indication: PROPHYLAXIS
     Dates: start: 20090301, end: 20090401
  4. ASPIRIN [Suspect]
     Dates: start: 20090401, end: 20090601

REACTIONS (2)
  - ABDOMINAL DISCOMFORT [None]
  - PRURITUS [None]
